FAERS Safety Report 10147108 (Version 2)
Quarter: 2014Q3

REPORT INFORMATION
  Report Type: Other
  Country: US (occurrence: US)
  Receive Date: 20140501
  Receipt Date: 20140714
  Transmission Date: 20150326
  Serious: Yes (Other)
  Sender: FDA-Public Use
  Company Number: US-ACORDA-ACO_103302_2014

PATIENT
  Age: 48 Year
  Weight: 74.83 kg

DRUGS (1)
  1. AMPYRA [Suspect]
     Active Substance: DALFAMPRIDINE
     Indication: MULTIPLE SCLEROSIS
     Dosage: 10 MG, BID
     Route: 048
     Dates: start: 201309, end: 201311

REACTIONS (1)
  - Convulsion [Recovered/Resolved]

NARRATIVE: CASE EVENT DATE: 20140113
